FAERS Safety Report 8187877-1 (Version None)
Quarter: 2012Q1

REPORT INFORMATION
  Report Type: 
  Country: None (occurrence: None)
  Receive Date: 20120306
  Receipt Date: 20110606
  Transmission Date: 20120608
  Serious: Yes (Death)
  Sender: FDA-Public Use
  Company Number: US-GLAXOSMITHKLINE-A0932392A

PATIENT
  Sex: Male

DRUGS (1)
  1. ROSIGLITAZONE MALEATE [Suspect]
     Indication: DIABETES MELLITUS
     Route: 048

REACTIONS (5)
  - CEREBROVASCULAR ACCIDENT [None]
  - DEATH [None]
  - RENAL FAILURE [None]
  - HYPERGLYCAEMIA [None]
  - TRANSIENT ISCHAEMIC ATTACK [None]
